FAERS Safety Report 11105980 (Version 1)
Quarter: 2015Q2

REPORT INFORMATION
  Report Type: Spontaneous
  Country: US (occurrence: None)
  Receive Date: 20150511
  Receipt Date: 20150511
  Transmission Date: 20150821
  Serious: No
  Sender: FDA-Public Use
  Company Number: None

PATIENT
  Age: 55 Year
  Sex: Female

DRUGS (1)
  1. ORENCIA [Suspect]
     Active Substance: ABATACEPT
     Dosage: 1 SYRINGE, Q WEEK, SUBCUTANEOUS
     Route: 058
     Dates: start: 20150415, end: 20150429

REACTIONS (5)
  - Fatigue [None]
  - Lethargy [None]
  - Malaise [None]
  - Myalgia [None]
  - Asthenia [None]

NARRATIVE: CASE EVENT DATE: 20150422
